FAERS Safety Report 15302006 (Version 2)
Quarter: 2018Q3

REPORT INFORMATION
  Report Type: Report from Study
  Country: AT (occurrence: AT)
  Receive Date: 20180821
  Receipt Date: 20180827
  Transmission Date: 20181010
  Serious: Yes (Hospitalization)
  Sender: FDA-Public Use
  Company Number: AT-SAKK-2018SA214936AA

PATIENT
  Age: 74 Year
  Sex: Male
  Weight: 64 kg

DRUGS (32)
  1. AFLIBERCEPT [Suspect]
     Active Substance: AFLIBERCEPT
     Indication: COLORECTAL CANCER METASTATIC
     Dosage: 4 MG/KG, QCY
     Route: 042
     Dates: start: 20180720, end: 20180720
  2. AFLIBERCEPT [Suspect]
     Active Substance: AFLIBERCEPT
     Dosage: 4 MG/KG, QCY
     Route: 042
     Dates: start: 20171229, end: 20171229
  3. FLUOROURACIL. [Suspect]
     Active Substance: FLUOROURACIL
     Dosage: 2400 MG/M2, QCY
     Route: 042
     Dates: start: 20171229, end: 20171229
  4. GLANDOMED [Concomitant]
     Indication: PROPHYLAXIS
     Dosage: 35 SPOON
     Route: 048
     Dates: start: 20170604
  5. ATROPIN [ATROPINE] [Concomitant]
     Indication: PROPHYLAXIS
     Dosage: 0.2 MG, QD
     Route: 058
     Dates: start: 20180301
  6. ONDANSETRON [Concomitant]
     Active Substance: ONDANSETRON
     Indication: PROPHYLAXIS
     Dosage: UNK UNK, PRN
     Route: 048
     Dates: start: 20180122
  7. MAGNESIUM GLUCONICUM [Concomitant]
     Dosage: 10 ML, PRN
     Route: 042
     Dates: start: 20180802
  8. PASPERTIN E [Concomitant]
     Indication: PROPHYLAXIS
     Dosage: 10 MG, PRN
     Route: 048
     Dates: start: 20170518
  9. IRINOTECAN [Suspect]
     Active Substance: IRINOTECAN
     Dosage: 180 MG/M2, QCY
     Route: 042
     Dates: start: 20171229, end: 20171229
  10. FLUOROURACIL. [Suspect]
     Active Substance: FLUOROURACIL
     Indication: COLORECTAL CANCER METASTATIC
     Dosage: 400 MG/M2, QCY
     Route: 040
     Dates: start: 20180720, end: 20180720
  11. LEUCOVORIN [FOLINIC ACID] [Suspect]
     Active Substance: LEUCOVORIN
     Dosage: 400 MG/M2, QCY
     Route: 042
     Dates: start: 20171229, end: 20171229
  12. THROMBO ASS [Concomitant]
     Active Substance: ASPIRIN
     Indication: PROPHYLAXIS
     Dosage: 100 MG, QD
     Route: 048
  13. PANTOLOC [PANTOPRAZOLE] [Concomitant]
     Indication: GASTRITIS
     Dosage: 40 MG, QD
     Route: 048
  14. HUMALOG MIX [Concomitant]
     Active Substance: INSULIN LISPRO
     Indication: HYPERGLYCAEMIA
     Dosage: UNK UNK, PRN
     Route: 058
     Dates: start: 20170717
  15. OLEOVIT?D3 [Concomitant]
     Indication: PROPHYLAXIS
     Dosage: 3 DROPS
     Route: 048
     Dates: start: 20170714
  16. BINOCRIT [Concomitant]
     Active Substance: ERYTHROPOIETIN
     Indication: ANAEMIA
     Dosage: 30.000 IU, QW
     Route: 058
     Dates: start: 20180315
  17. KALIORAL [POTASSIUM CANRENOATE] [Concomitant]
     Indication: HYPOKALAEMIA
     Dosage: UNK UNK, PRN
     Route: 048
     Dates: start: 20180513
  18. MAGNESIUM ADIPATE;MAGNESIUM NICOTINATE [Concomitant]
     Indication: HYPOMAGNESAEMIA
     Dosage: UNK UNK, PRN
     Route: 042
     Dates: start: 20180621
  19. FLUOROURACIL. [Suspect]
     Active Substance: FLUOROURACIL
     Dosage: 2400 MG/M2, QCY
     Route: 042
     Dates: start: 20180720, end: 20180720
  20. AKYNZEO [Concomitant]
     Active Substance: NETUPITANT\PALONOSETRON HYDROCHLORIDE
     Indication: PROPHYLAXIS
     Dosage: 300 MG, QD
     Route: 048
     Dates: start: 20180118
  21. CIPROLEX [Concomitant]
     Active Substance: CIPROFLOXACIN HYDROCHLORIDE
     Indication: DEPRESSION
     Dosage: 10 MG, QD
     Route: 048
     Dates: start: 20170623
  22. PARACETAMOL [Concomitant]
     Active Substance: ACETAMINOPHEN
     Indication: PROPHYLAXIS
     Dosage: 500 MG, PRN
     Route: 048
     Dates: start: 20170721
  23. FORTECORTIN [DEXAMETHASONE] [Concomitant]
     Indication: PROPHYLAXIS
     Dosage: 12 MG, QD
     Route: 042
     Dates: start: 20180301
  24. IRINOTECAN [Suspect]
     Active Substance: IRINOTECAN
     Indication: COLORECTAL CANCER METASTATIC
     Dosage: 180 MG/M2, QCY
     Route: 042
     Dates: start: 20180720, end: 20180720
  25. FLUOROURACIL. [Suspect]
     Active Substance: FLUOROURACIL
     Dosage: 400 MG/M2, QCY
     Route: 040
     Dates: start: 20171229, end: 20171229
  26. ZINKOROTAT POS [Concomitant]
     Indication: PROPHYLAXIS
     Dosage: UNK UNK, UNK
     Route: 048
  27. DEXPANTHENOL. [Concomitant]
     Active Substance: DEXPANTHENOL
     Indication: OROPHARYNGEAL PAIN
     Dosage: 1 SPOON
     Route: 048
     Dates: start: 20180215
  28. CONCOR [Concomitant]
     Active Substance: BISOPROLOL FUMARATE
     Indication: PROPHYLAXIS
     Dosage: 125 MG, QD
     Route: 048
     Dates: start: 20180607
  29. LEUCOVORIN [FOLINIC ACID] [Suspect]
     Active Substance: LEUCOVORIN
     Indication: COLORECTAL CANCER METASTATIC
     Dosage: 400 MG/M2, QCY
     Route: 042
     Dates: start: 20180720, end: 20180720
  30. LONQUEX [Concomitant]
     Active Substance: LIPEGFILGRASTIM
     Indication: PROPHYLAXIS
     Dosage: 6 MG, PRN
     Route: 058
     Dates: start: 20180514
  31. ENTEROBENE [Concomitant]
     Indication: PROPHYLAXIS
     Dosage: UNK UNK, PRN
     Route: 048
     Dates: start: 20180607
  32. MAGNESIUM GLUCONICUM [Concomitant]
     Indication: HYPOMAGNESAEMIA
     Dosage: 10 ML, PRN
     Route: 042
     Dates: start: 20180621

REACTIONS (1)
  - General physical health deterioration [Recovered/Resolved]

NARRATIVE: CASE EVENT DATE: 20180803
